FAERS Safety Report 9716402 (Version 1)
Quarter: 2013Q4

REPORT INFORMATION
  Report Type: Spontaneous
  Country: FR (occurrence: None)
  Receive Date: 20131125
  Receipt Date: 20131125
  Transmission Date: 20140711
  Serious: Yes (Death)
  Sender: FDA-Public Use
  Company Number: 2025618

PATIENT
  Age: 42 Year
  Sex: Male

DRUGS (2)
  1. (CARBOPLATIN) [Suspect]
     Indication: METASTASES TO LIVER
     Route: 041
     Dates: start: 20130930, end: 20130930
  2. (ALIMTA) [Suspect]
     Indication: METASTASES TO LIVER
     Route: 041
     Dates: start: 20130930, end: 20130930

REACTIONS (8)
  - Hypotension [None]
  - Tachycardia [None]
  - Pancytopenia [None]
  - Anaemia [None]
  - Metabolic acidosis [None]
  - Septic shock [None]
  - Acute respiratory distress syndrome [None]
  - Multi-organ failure [None]
